FAERS Safety Report 11340165 (Version 1)
Quarter: 2015Q3

REPORT INFORMATION
  Report Type: Spontaneous
  Country: US (occurrence: None)
  Receive Date: 20150629
  Receipt Date: 20150629
  Transmission Date: 20151125
  Serious: No
  Sender: FDA-Public Use
  Company Number: A-US2014-106146

PATIENT
  Age: 78 Year
  Sex: Male
  Weight: 79.4 kg

DRUGS (9)
  1. METOPROLOL (METOPROLOL FUMARATE) [Concomitant]
  2. OPSUMIT [Suspect]
     Active Substance: MACITENTAN
     Indication: PULMONARY ARTERIAL HYPERTENSION
     Route: 048
     Dates: start: 20140915
  3. LASIX [Concomitant]
     Active Substance: FUROSEMIDE
  4. KLOR-CON (POTASSIUM CHLORIDE) [Concomitant]
  5. ADCIRCA [Concomitant]
     Active Substance: TADALAFIL
  6. FOLIC ACID. [Concomitant]
     Active Substance: FOLIC ACID
  7. CRESTOR [Concomitant]
     Active Substance: ROSUVASTATIN CALCIUM
  8. WARFARIN (WARFARIN POTASSIUM) [Concomitant]
  9. DIGOXIN (BETA-ACETYLDIGOXIN) [Concomitant]
     Active Substance: .BETA.-ACETYLDIGOXIN

REACTIONS (10)
  - Tenderness [None]
  - Insomnia [None]
  - Feeling abnormal [None]
  - Fatigue [None]
  - Weight increased [None]
  - Fluid retention [None]
  - Dyspnoea [None]
  - Malaise [None]
  - Dyspnoea exertional [None]
  - Palpitations [None]

NARRATIVE: CASE EVENT DATE: 20140919
